FAERS Safety Report 9523183 (Version 1)
Quarter: 2013Q3

REPORT INFORMATION
  Report Type: Spontaneous
  Country: FR (occurrence: FR)
  Receive Date: 20130913
  Receipt Date: 20130913
  Transmission Date: 20140515
  Serious: Yes (Hospitalization)
  Sender: FDA-Public Use
  Company Number: FR-GLAXOSMITHKLINE-B0921001A

PATIENT
  Age: 26 Year
  Sex: Female

DRUGS (7)
  1. ZOPHREN [Suspect]
     Indication: PRODUCT USED FOR UNKNOWN INDICATION
     Route: 065
     Dates: start: 20130722, end: 20130730
  2. INEXIUM [Suspect]
     Indication: PRODUCT USED FOR UNKNOWN INDICATION
     Route: 042
     Dates: start: 20130725, end: 20130730
  3. VOGALENE [Suspect]
     Indication: PRODUCT USED FOR UNKNOWN INDICATION
     Route: 065
     Dates: start: 20130724, end: 20130730
  4. PIPERACILLIN [Concomitant]
  5. TAZOBACTAM [Concomitant]
  6. AMIKACINE [Concomitant]
  7. VANCOMYCINE [Concomitant]

REACTIONS (3)
  - Septic shock [Recovering/Resolving]
  - Pancytopenia [Recovering/Resolving]
  - Hyperthermia [Recovering/Resolving]
